FAERS Safety Report 5922087-7 (Version None)
Quarter: 2008Q3

REPORT INFORMATION
  Report Type: 
  Country: None (occurrence: None)
  Receive Date: 20080909
  Receipt Date: 20080617
  Transmission Date: 20090109
  Serious: Yes (Hospitalization)
  Sender: FDA-Public Use
  Company Number: 163-20785-08061029

PATIENT
  Age: 82 Year
  Sex: Female

DRUGS (2)
  1. THALOMID [Suspect]
     Indication: MULTIPLE MYELOMA
     Dosage: 150 MG, QD, ORAL ; 100 MG, QD, ORAL
     Route: 048
     Dates: start: 20080319
  2. THALOMID [Suspect]
     Indication: MULTIPLE MYELOMA
     Dosage: 150 MG, QD, ORAL ; 100 MG, QD, ORAL
     Route: 048
     Dates: start: 20080609

REACTIONS (1)
  - RENAL IMPAIRMENT [None]
